FAERS Safety Report 4566829-4 (Version None)
Quarter: 2005Q1

REPORT INFORMATION
  Report Type: 
  Country: None (occurrence: None)
  Receive Date: 20050201
  Receipt Date: 20020418
  Transmission Date: 20050727
  Serious: Yes (Other)
  Sender: FDA-Public Use
  Company Number: US-BRISTOL-MYERS SQUIBB COMPANY-11834181

PATIENT
  Age: 28 Year
  Sex: Female

DRUGS (7)
  1. STADOL [Suspect]
     Indication: MIGRAINE
     Route: 045
     Dates: start: 19900814, end: 19961122
  2. PROPRANOLOL HYDROCHLORIDE [Concomitant]
  3. PHENERGAN [Concomitant]
  4. MS CONTIN [Concomitant]
  5. LORCET-HD [Concomitant]
  6. DEPAKOTE [Concomitant]
  7. TEGRETOL [Concomitant]

REACTIONS (3)
  - CONVULSION [None]
  - DEPENDENCE [None]
  - SYNCOPE [None]
